FAERS Safety Report 20318969 (Version 3)
Quarter: 2022Q1

REPORT INFORMATION
  Report Type: Report from Study
  Country: US (occurrence: US)
  Receive Date: 20220110
  Receipt Date: 20220208
  Transmission Date: 20220423
  Serious: Yes (Other)
  Sender: FDA-Public Use
  Company Number: US-ORGANON-O2201USA000704

PATIENT
  Age: 15 Year
  Sex: Female
  Weight: 67.574 kg

DRUGS (1)
  1. IMPLANON [Suspect]
     Active Substance: ETONOGESTREL
     Dosage: STRENGTH - 68 MILLIGRAM, DOSE/FREQUENCY REPORTED AS 68 MG ROD, LEFT ARM
     Route: 059
     Dates: start: 20211206, end: 20211227

REACTIONS (2)
  - Device expulsion [Recovered/Resolved]
  - Implant site pain [Unknown]

NARRATIVE: CASE EVENT DATE: 20211201
